FAERS Safety Report 22365642 (Version 1)
Quarter: 2023Q2

REPORT INFORMATION
  Report Type: Spontaneous
  Country: US (occurrence: US)
  Receive Date: 20230525
  Receipt Date: 20230525
  Transmission Date: 20230721
  Serious: No
  Sender: FDA-Public Use
  Company Number: US-JNJFOC-20230549826

PATIENT
  Sex: Male

DRUGS (2)
  1. SPRAVATO [Suspect]
     Active Substance: ESKETAMINE
     Indication: Product used for unknown indication
     Route: 065
  2. KETAMINE [Suspect]
     Active Substance: KETAMINE
     Route: 042

REACTIONS (2)
  - Circumstance or information capable of leading to medication error [Unknown]
  - Medical observation abnormal [Unknown]
